FAERS Safety Report 10205758 (Version 1)
Quarter: 2014Q2

REPORT INFORMATION
  Report Type: Report from Study
  Country: US (occurrence: US)
  Receive Date: 20140530
  Receipt Date: 20140530
  Transmission Date: 20141212
  Serious: Yes (Other)
  Sender: FDA-Public Use
  Company Number: US-ROCHE-1409669

PATIENT
  Age: 10 Year
  Sex: Female

DRUGS (8)
  1. NUTROPIN AQ [Suspect]
     Indication: HYPOPITUITARISM
     Route: 058
  2. SYNTHROID [Concomitant]
     Indication: HYPOPITUITARISM
     Route: 048
  3. CORTEF [Concomitant]
     Indication: HYPOPITUITARISM
     Dosage: AM
     Route: 048
  4. CORTEF [Concomitant]
     Route: 048
  5. SOLU-CORTEF [Concomitant]
     Indication: HYPOPITUITARISM
     Dosage: PRN
     Route: 030
  6. POLY-VI-SOL [Concomitant]
     Dosage: 1 TAB
     Route: 048
  7. ZANTAC [Concomitant]
     Dosage: HS
     Route: 048
  8. TYLENOL [Concomitant]
     Indication: PAIN
     Route: 048

REACTIONS (1)
  - Thyroxine free decreased [Unknown]
